FAERS Safety Report 4628905-7 (Version None)
Quarter: 2005Q2

REPORT INFORMATION
  Report Type: 
  Country: None (occurrence: None)
  Receive Date: 20050406
  Receipt Date: 20050325
  Transmission Date: 20051028
  Serious: Yes (Other)
  Sender: FDA-Public Use
  Company Number: 2004047157

PATIENT
  Age: 14 Year
  Sex: Male
  Weight: 40.8237 kg

DRUGS (1)
  1. NEURONTIN (GABAPENTIN) [Suspect]
     Indication: CEREBRAL PALSY
     Dosage: 600 MG (200 MG, 3 IN 1 D), ORAL
     Route: 048

REACTIONS (5)
  - EMOTIONAL DISORDER [None]
  - GROWTH ACCELERATED [None]
  - MEDICATION TAMPERING [None]
  - PHARMACEUTICAL PRODUCT COMPLAINT [None]
  - THERAPEUTIC RESPONSE DECREASED [None]
